FAERS Safety Report 8835978 (Version 5)
Quarter: 2014Q1

REPORT INFORMATION
  Report Type: Report from Study
  Country: FR (occurrence: FR)
  Receive Date: 20121011
  Receipt Date: 20140115
  Transmission Date: 20141002
  Serious: Yes (Hospitalization)
  Sender: FDA-Public Use
  Company Number: FR-009507513-1210FRA003887

PATIENT
  Age: 52 Year
  Sex: Male
  Weight: 67 kg

DRUGS (20)
  1. BOCEPREVIR [Suspect]
     Indication: HEPATITIS C
     Dosage: 800 MG, TID
     Dates: start: 20120723, end: 20121007
  2. PEGASYS [Suspect]
     Indication: HEPATITIS C
     Dosage: 180 MICROGRAM, QW
     Dates: start: 20120626, end: 20121001
  3. COPEGUS [Suspect]
     Indication: HEPATITIS C
     Dosage: 1000 MG, QD
     Dates: start: 20120626, end: 20120729
  4. COPEGUS [Suspect]
     Dosage: 800 MG, QD
     Dates: start: 20120730, end: 20120916
  5. COPEGUS [Suspect]
     Dosage: 600 MG, QD
     Dates: start: 20120917, end: 20121007
  6. FUROSEMIDE [Concomitant]
     Indication: ASCITES
     Dosage: 20 MG, QD
     Dates: start: 201204
  7. SPIRONOLACTONE [Concomitant]
     Indication: ASCITES
     Dosage: 75 MG, QD
     Dates: start: 20120917
  8. LEVOCETIRIZINE [Concomitant]
     Indication: PRURITUS
     Dosage: 5 MG, QD
     Dates: start: 20120929
  9. RACECADOTRIL [Concomitant]
     Indication: DIARRHOEA
     Dosage: 100 MG, TID
     Dates: start: 20120806
  10. FERROUS SULFATE [Concomitant]
     Indication: ANAEMIA
     Dosage: 2 DF, QD
     Dates: start: 20120917
  11. EPOETIN BETA [Concomitant]
     Indication: ANAEMIA
     Dosage: 30000 IU, QW
     Dates: start: 20120917
  12. POTASSIUM CHLORIDE [Concomitant]
     Indication: HYPOKALAEMIA
     Dosage: 1000 MG, QD
     Dates: start: 20120806
  13. PROGRAF [Concomitant]
     Indication: ANTICOAGULANT THERAPY
     Dosage: 8 MG, QD
     Dates: start: 20130409
  14. SOLUPRED [Concomitant]
     Indication: ANTICOAGULANT THERAPY
     Dosage: UNK UNK, QD
  15. CELLCEPT [Concomitant]
     Indication: ANTICOAGULANT THERAPY
     Dosage: UNK UNK, BID
  16. ROVALCYTE [Concomitant]
     Indication: PROPHYLAXIS
     Dosage: UNK UNK, BID
  17. URSOLVAN [Concomitant]
     Indication: PROPHYLAXIS
     Dosage: UNK
  18. ALDACTONE TABLETS [Concomitant]
     Indication: PROPHYLAXIS
     Dosage: UNK
  19. INEXIUM [Concomitant]
     Indication: PROPHYLAXIS
     Dosage: UNK, QD
  20. ATARAX (ALPRAZOLAM) [Concomitant]
     Indication: INSOMNIA

REACTIONS (3)
  - Abdominal pain [Recovered/Resolved]
  - Ascites [Recovered/Resolved]
  - Drain removal [Recovered/Resolved]
